FAERS Safety Report 17638540 (Version 11)
Quarter: 2022Q1

REPORT INFORMATION
  Report Type: Report from Study
  Country: US (occurrence: US)
  Receive Date: 20200407
  Receipt Date: 20220114
  Transmission Date: 20220423
  Serious: Yes (Life-Threatening, Hospitalization)
  Sender: FDA-Public Use
  Company Number: US-PFIZER INC-2020113369

PATIENT
  Age: 72 Year
  Sex: Male
  Weight: 65.76 kg

DRUGS (25)
  1. AVELUMAB [Suspect]
     Active Substance: AVELUMAB
     Indication: Oropharyngeal cancer
     Dosage: 658 MG, CYCLIC (ONCE EVERY 2 WEEKS)
     Route: 042
     Dates: start: 20200313, end: 20200313
  2. INVESTIGATIONAL PRODUCT [Suspect]
     Active Substance: INVESTIGATIONAL PRODUCT
     Indication: Oropharyngeal cancer
     Dosage: 10 MG
     Route: 058
     Dates: start: 20200313, end: 20200313
  3. DIPHENHYDRAMINE HYDROCHLORIDE [Suspect]
     Active Substance: DIPHENHYDRAMINE HYDROCHLORIDE
     Indication: Prophylaxis
     Dosage: 25 MG, INFUSION, ONCE
     Route: 041
     Dates: start: 20200313, end: 20200313
  4. DILAUDID [Suspect]
     Active Substance: HYDROMORPHONE HYDROCHLORIDE
     Indication: Pain
     Dosage: 2 MG, ONCE
     Route: 048
     Dates: start: 20200313, end: 20200313
  5. ALBUTEROL [Concomitant]
     Active Substance: ALBUTEROL
     Indication: Wheezing
     Dosage: 2.5 MG, PRN
     Route: 055
     Dates: start: 20191130
  6. AMMONIUM LACTATE [Concomitant]
     Active Substance: AMMONIUM LACTATE
     Indication: Prophylaxis
     Dosage: 12 % LOTION, PRN
     Route: 061
     Dates: start: 20191226
  7. ASPIRIN [Concomitant]
     Active Substance: ASPIRIN
     Indication: Prophylaxis
     Dosage: 81 MG, QD
     Route: 048
  8. BUDESONIDE\FORMOTEROL [Concomitant]
     Active Substance: BUDESONIDE\FORMOTEROL
     Indication: Asthma
     Dosage: 4.5 MG, 1X/DAY (QD)
     Route: 055
  9. BUPROPION [Concomitant]
     Active Substance: BUPROPION
     Indication: Depression
     Dosage: 100 MG, BID
     Route: 048
     Dates: start: 20191212
  10. FAMOTIDINE [Concomitant]
     Active Substance: FAMOTIDINE
     Indication: Gastrooesophageal reflux disease
     Dosage: 20 MG, BID
     Route: 048
     Dates: start: 20190225
  11. BUTALBITAL, ACETAMINOPHEN, AND CAFFEINE [Concomitant]
     Active Substance: ACETAMINOPHEN\BUTALBITAL\CAFFEINE
     Indication: Headache
     Dosage: 40 MG, QD PRN
     Route: 048
     Dates: start: 20191108
  12. GLYCOPYRRONIUM [Concomitant]
     Active Substance: GLYCOPYRRONIUM
     Indication: Gastrooesophageal reflux disease
     Dosage: 1 MG, QD PRN
     Route: 048
     Dates: start: 20190815
  13. IBUPROFEN [Concomitant]
     Active Substance: IBUPROFEN
     Indication: Pain
     Dosage: 600 MG, Q6HRS PRN
     Route: 048
  14. IPRATROPIUM [Concomitant]
     Active Substance: IPRATROPIUM
     Indication: Asthma
     Dosage: 2 MG, QID
     Route: 055
     Dates: start: 20191130
  15. JEVITY [FAMOTIDINE] [Concomitant]
     Indication: Supplementation therapy
     Dosage: 2 CANS, TID
     Route: 048
     Dates: start: 20190226
  16. OSMOLITE [Concomitant]
     Indication: Supplementation therapy
     Dosage: UNK
     Route: 048
     Dates: start: 20190226
  17. ONDANSETRON [Concomitant]
     Active Substance: ONDANSETRON
     Indication: Prophylaxis
     Dosage: 4 MG, Q8HRS AS NEEDED (PRN)
     Route: 048
     Dates: start: 20191018
  18. ACETAMINOPHEN\OXYCODONE HYDROCHLORIDE [Concomitant]
     Active Substance: ACETAMINOPHEN\OXYCODONE HYDROCHLORIDE
     Indication: Pain
     Dosage: 325 MG, Q6HRS
     Route: 048
     Dates: start: 20191018
  19. PREGABALIN [Concomitant]
     Active Substance: PREGABALIN
     Indication: Pain
     Dosage: 200 MG, BID
     Route: 048
     Dates: start: 20191101
  20. TAMSULOSIN [Concomitant]
     Active Substance: TAMSULOSIN
     Indication: Prostatomegaly
     Dosage: 0.4 MG, QD
     Route: 048
  21. TIZANIDINE [Concomitant]
     Active Substance: TIZANIDINE
     Indication: Muscle spasms
     Dosage: 2 MG, Q8HRS AS NEEDED (PRN)
     Route: 048
     Dates: start: 20191108
  22. UMECLIDINIUM BROMIDE\VILANTEROL TRIFENATATE [Concomitant]
     Active Substance: UMECLIDINIUM BROMIDE\VILANTEROL TRIFENATATE
     Indication: Asthma
     Dosage: 1 PUFF, QD
     Route: 055
     Dates: start: 20191230
  23. SODIUM CHLORIDE [Concomitant]
     Active Substance: SODIUM CHLORIDE
     Dosage: 1000 ML
     Dates: start: 20200313
  24. GRANISETRON [Concomitant]
     Active Substance: GRANISETRON
     Dosage: UNK UG
     Dates: start: 20200313
  25. ACETAMINOPHEN [Concomitant]
     Active Substance: ACETAMINOPHEN
     Dosage: UNK
     Dates: start: 20200313

REACTIONS (2)
  - Syncope [Recovered/Resolved]
  - Pneumonia aspiration [Recovered/Resolved]

NARRATIVE: CASE EVENT DATE: 20200313
